FAERS Safety Report 20156131 (Version 1)
Quarter: 2021Q4

REPORT INFORMATION
  Report Type: Spontaneous
  Country: TR (occurrence: TR)
  Receive Date: 20211207
  Receipt Date: 20211207
  Transmission Date: 20220303
  Serious: Yes (Life-Threatening)
  Sender: FDA-Public Use
  Company Number: TR-AstraZeneca-2021A840076

PATIENT
  Age: 51 Year
  Sex: Female
  Weight: 56 kg

DRUGS (4)
  1. METOPROLOL SUCCINATE [Suspect]
     Active Substance: METOPROLOL SUCCINATE
     Dosage: USED DOSE IS 1
     Route: 048
     Dates: start: 20210701
  2. RIFKAP [Concomitant]
     Route: 065
  3. SITAFIN [Concomitant]
     Route: 048
     Dates: start: 20211111
  4. ASPIRIN [Concomitant]
     Active Substance: ASPIRIN
     Route: 065

REACTIONS (10)
  - Dry throat [Unknown]
  - Burning sensation [Unknown]
  - Paraesthesia [Unknown]
  - Tongue dry [Unknown]
  - Tongue disorder [Unknown]
  - Dyspnoea [Unknown]
  - Dizziness [Unknown]
  - Tension [Unknown]
  - Peripheral swelling [Unknown]
  - Product use in unapproved indication [Unknown]

NARRATIVE: CASE EVENT DATE: 20211111
